FAERS Safety Report 5599191-9 (Version None)
Quarter: 2008Q1

REPORT INFORMATION
  Report Type: 
  Country: None (occurrence: None)
  Receive Date: 20080122
  Receipt Date: 20080115
  Transmission Date: 20080703
  Serious: Yes (Hospitalization, Disabling)
  Sender: FDA-Public Use
  Company Number: US-MERCK-0707USA02302

PATIENT
  Age: 60 Year
  Sex: Female

DRUGS (4)
  1. FOSAMAX [Suspect]
     Indication: OSTEOPOROSIS
     Route: 048
     Dates: start: 20021210, end: 20030101
  2. FOSAMAX [Suspect]
     Route: 048
     Dates: start: 20030101, end: 20060601
  3. [THERAPY UNSPECIFIED] [Concomitant]
     Indication: HYPERTENSION
     Route: 065
     Dates: start: 19830101
  4. [THERAPY UNSPECIFIED] [Concomitant]
     Indication: BLOOD CHOLESTEROL INCREASED
     Route: 065
     Dates: start: 20000101

REACTIONS (15)
  - ABSCESS ORAL [None]
  - ANXIETY [None]
  - ARTHRALGIA [None]
  - BACK PAIN [None]
  - CELLULITIS [None]
  - DEHYDRATION [None]
  - DEVICE RELATED INFECTION [None]
  - FALL [None]
  - JOINT INJURY [None]
  - OSTEOMYELITIS [None]
  - PEPTIC ULCER [None]
  - RHINITIS ALLERGIC [None]
  - SINUSITIS [None]
  - TENDONITIS [None]
  - TOOTH LOSS [None]
